FAERS Safety Report 11357508 (Version 1)
Quarter: 2015Q3

REPORT INFORMATION
  Report Type: Spontaneous
  Country: US (occurrence: US)
  Receive Date: 20150803
  Receipt Date: 20150803
  Transmission Date: 20151125
  Serious: No
  Sender: FDA-Public Use
  Company Number: US-ELI_LILLY_AND_COMPANY-US201405000635

PATIENT
  Age: 6 Year
  Sex: Male

DRUGS (3)
  1. ATOMOXETINE HYDROCHLORIDE. [Suspect]
     Active Substance: ATOMOXETINE HYDROCHLORIDE
     Indication: ATTENTION DEFICIT/HYPERACTIVITY DISORDER
     Dosage: 25 MG, QD
     Route: 065
     Dates: start: 201302, end: 201307
  2. BENADRYL [Interacting]
     Active Substance: DIPHENHYDRAMINE HYDROCHLORIDE
     Indication: SUNBURN
     Dosage: UNK, UNKNOWN
     Route: 065
  3. ATOMOXETINE HYDROCHLORIDE. [Interacting]
     Active Substance: ATOMOXETINE HYDROCHLORIDE
     Indication: ANXIETY

REACTIONS (5)
  - Sunburn [Recovered/Resolved]
  - Psychotic disorder [Recovered/Resolved]
  - Hallucination [Recovered/Resolved]
  - Irritability [Recovered/Resolved]
  - Drug interaction [Recovered/Resolved]
